FAERS Safety Report 17388179 (Version 4)
Quarter: 2020Q4

REPORT INFORMATION
  Report Type: Spontaneous
  Country: RU (occurrence: RU)
  Receive Date: 20200206
  Receipt Date: 20201211
  Transmission Date: 20210113
  Serious: Yes (Other)
  Sender: FDA-Public Use
  Company Number: RU-BIOMARINAP-RU-2020-128175

PATIENT
  Age: 6 Year
  Sex: Male

DRUGS (1)
  1. BRINEURA [Suspect]
     Active Substance: CERLIPONASE ALFA
     Indication: NEURONAL CEROID LIPOFUSCINOSIS
     Dosage: UNK
     Route: 020
     Dates: start: 20191128

REACTIONS (8)
  - Seizure [Unknown]
  - Device related infection [Unknown]
  - Myoclonus [Unknown]
  - Weight decreased [Unknown]
  - Body temperature increased [Unknown]
  - Hypokinesia [Unknown]
  - Condition aggravated [Unknown]
  - CNS ventriculitis [Unknown]

NARRATIVE: CASE EVENT DATE: 202001
